FAERS Safety Report 18584385 (Version 1)
Quarter: 2020Q4

REPORT INFORMATION
  Report Type: Report from Study
  Country: RO (occurrence: RO)
  Receive Date: 20201207
  Receipt Date: 20201207
  Transmission Date: 20210114
  Serious: Yes (Other)
  Sender: FDA-Public Use
  Company Number: RO-GILEAD-2020-0486594

PATIENT
  Age: 67 Year
  Sex: Female

DRUGS (5)
  1. DETRALEX [Concomitant]
     Active Substance: DIOSMIN\HESPERIDIN
  2. JANUMET [Concomitant]
     Active Substance: METFORMIN HYDROCHLORIDE\SITAGLIPTIN PHOSPHATE
  3. TELMISARTAN. [Concomitant]
     Active Substance: TELMISARTAN
  4. LEDIPASVIR/SOFOSBUVIR [Suspect]
     Active Substance: LEDIPASVIR\SOFOSBUVIR
     Indication: CHRONIC HEPATITIS C
     Dosage: 1 DOSAGE FORM, QD
     Route: 048
     Dates: start: 20200721, end: 20200914
  5. ALGOCALMIN [Concomitant]
     Active Substance: METAMIZOLE SODIUM

REACTIONS (5)
  - Pneumonia [Recovering/Resolving]
  - Abdominal pain upper [Recovered/Resolved]
  - Angina unstable [Not Recovered/Not Resolved]
  - Ear infection [Not Recovered/Not Resolved]
  - Movement disorder [Not Recovered/Not Resolved]

NARRATIVE: CASE EVENT DATE: 20200721
